FAERS Safety Report 6786312-5 (Version None)
Quarter: 2010Q2

REPORT INFORMATION
  Report Type: 
  Country: None (occurrence: None)
  Receive Date: 20100623
  Receipt Date: 20100614
  Transmission Date: 20101027
  Serious: Yes (Hospitalization)
  Sender: FDA-Public Use
  Company Number: GXKR2010NO06568

PATIENT
  Sex: Male

DRUGS (2)
  1. METHOTREXATE [Suspect]
     Indication: PSORIASIS
     Dosage: 15 MG, QW
     Route: 048
     Dates: start: 20100416, end: 20100602
  2. FOLIC ACID [Concomitant]
     Dosage: 1 MG, QD
     Route: 048
     Dates: start: 20100406

REACTIONS (3)
  - CEREBRAL INFARCTION [None]
  - DISORIENTATION [None]
  - NECK PAIN [None]
